FAERS Safety Report 7068200-2 (Version None)
Quarter: 2010Q4

REPORT INFORMATION
  Report Type: 
  Country: None (occurrence: None)
  Receive Date: 20101028
  Receipt Date: 20090917
  Transmission Date: 20110411
  Serious: No
  Sender: FDA-Public Use
  Company Number: US-MYLANLABS-2009S1016435

PATIENT
  Age: 36 Year
  Sex: Male
  Weight: 94.35 kg

DRUGS (5)
  1. DIAZEPAM [Suspect]
     Indication: POST-TRAUMATIC STRESS DISORDER
     Route: 048
     Dates: end: 20090803
  2. DIAZEPAM [Suspect]
     Route: 048
     Dates: start: 20090804, end: 20090907
  3. DIAZEPAM [Suspect]
     Route: 048
     Dates: start: 20090908
  4. SYMBICORT [Concomitant]
     Indication: ASTHMA
  5. PROAIR HFA [Concomitant]
     Indication: ASTHMA

REACTIONS (4)
  - ANXIETY [None]
  - DRUG EFFECT DECREASED [None]
  - FLASHBACK [None]
  - PANIC ATTACK [None]
